FAERS Safety Report 6636938-4 (Version None)
Quarter: 2010Q1

REPORT INFORMATION
  Report Type: 
  Country: None (occurrence: None)
  Receive Date: 20100316
  Receipt Date: 20100302
  Transmission Date: 20100710
  Serious: Yes (Hospitalization)
  Sender: FDA-Public Use
  Company Number: US-ELI_LILLY_AND_COMPANY-US201003001935

PATIENT
  Sex: Male

DRUGS (12)
  1. FORTEO [Suspect]
     Indication: OSTEOPOROSIS
     Dosage: 20 UG, UNKNOWN
     Route: 065
     Dates: start: 20081201
  2. ALBUTEROL [Concomitant]
     Dosage: UNK, UNKNOWN
     Route: 065
  3. PROTONIX [Concomitant]
     Dosage: UNK, UNKNOWN
     Route: 065
  4. THEOPHYLLINE [Concomitant]
     Dosage: UNK, UNKNOWN
     Route: 065
  5. SPIRONOLACTONE [Concomitant]
  6. BACLOFEN [Concomitant]
     Dosage: UNK, UNKNOWN
     Route: 065
  7. CYTOTEC [Concomitant]
     Dosage: UNK, UNKNOWN
     Route: 065
  8. CARAFATE [Concomitant]
     Dosage: UNK, UNKNOWN
     Route: 065
  9. DILAUDID [Concomitant]
     Dosage: UNK, UNKNOWN
  10. LYRICA [Concomitant]
     Dosage: UNK, UNKNOWN
     Route: 065
  11. LORAZEPAM [Concomitant]
     Dosage: UNK, UNKNOWN
  12. OXYGEN [Concomitant]
     Dosage: UNK, DAILY (1/D)
     Route: 065

REACTIONS (3)
  - CHRONIC OBSTRUCTIVE PULMONARY DISEASE [None]
  - CYSTITIS [None]
  - KIDNEY INFECTION [None]
